FAERS Safety Report 16110297 (Version 1)
Quarter: 2019Q1

REPORT INFORMATION
  Report Type: Report from Study
  Country: FR (occurrence: FR)
  Receive Date: 20190325
  Receipt Date: 20190325
  Transmission Date: 20190418
  Serious: Yes (Death, Other)
  Sender: FDA-Public Use
  Company Number: FR-GLAXOSMITHKLINE-FR2019GSK048290

PATIENT
  Sex: Male
  Weight: 80 kg

DRUGS (17)
  1. X-PREP [Concomitant]
     Active Substance: SENNOSIDES
     Dosage: 5 G, 1D
     Route: 048
     Dates: start: 20190208
  2. ZANAMIVIR [Suspect]
     Active Substance: ZANAMIVIR
     Indication: INFLUENZA
     Dosage: 600 MG, QD
     Route: 042
     Dates: start: 20190215
  3. ZANAMIVIR [Suspect]
     Active Substance: ZANAMIVIR
     Dosage: 250 MG, UNK
     Dates: start: 20190216
  4. BRICANYL [Concomitant]
     Active Substance: TERBUTALINE SULFATE
     Dosage: 10 MG, 6D
     Route: 055
     Dates: start: 20190217
  5. ZANAMIVIR [Suspect]
     Active Substance: ZANAMIVIR
     Dosage: 250 MG, BID
     Dates: start: 20190218
  6. ZANAMIVIR [Suspect]
     Active Substance: ZANAMIVIR
     Dosage: 250 MG, QD
     Dates: start: 20190220
  7. TAZOCILLINE [Concomitant]
     Active Substance: PIPERACILLIN SODIUM\TAZOBACTAM SODIUM
     Dosage: 4500 MG, QID
     Route: 050
     Dates: start: 20190212
  8. GLUCOSE 5 % [Concomitant]
     Active Substance: DEXTROSE
     Dosage: UNK
     Dates: start: 20190212
  9. ERYTHROMYCIN. [Concomitant]
     Active Substance: ERYTHROMYCIN
     Dosage: 125 MG, QID
     Route: 042
     Dates: start: 20190208
  10. TRANEXAMIC ACID. [Concomitant]
     Active Substance: TRANEXAMIC ACID
     Dosage: 500 MG, 6D
     Route: 003
     Dates: start: 20190208
  11. SUFENTA [Concomitant]
     Active Substance: SUFENTANIL CITRATE
     Dosage: UNK UNK, 6D, 250UG/5ML
     Route: 050
     Dates: start: 20190204
  12. ZANAMIVIR [Suspect]
     Active Substance: ZANAMIVIR
     Dosage: 250 MG, BID
     Dates: start: 20190217
  13. ZANAMIVIR [Suspect]
     Active Substance: ZANAMIVIR
     Dosage: 250 MG, BID
     Dates: start: 20190219
  14. DOLIPRANE [Concomitant]
     Active Substance: ACETAMINOPHEN
     Dosage: 500 MG, QID
     Route: 048
     Dates: start: 20190207
  15. KAYEXALATE [Concomitant]
     Active Substance: SODIUM POLYSTYRENE SULFONATE
     Dosage: 15 G, TID
     Route: 048
     Dates: start: 20190217
  16. MACROGOL [Concomitant]
     Active Substance: POLYETHYLENE GLYCOLS
     Dosage: 1 UNK, BID
     Route: 048
     Dates: start: 20190207
  17. LANSOPRAZOLE. [Concomitant]
     Active Substance: LANSOPRAZOLE
     Dosage: 15 MG, UNK
     Dates: start: 20190207

REACTIONS (1)
  - Multiple organ dysfunction syndrome [Fatal]
